FAERS Safety Report 15369648 (Version 1)
Quarter: 2018Q3

REPORT INFORMATION
  Report Type: Spontaneous
  Country: SE (occurrence: SE)
  Receive Date: 20180911
  Receipt Date: 20180911
  Transmission Date: 20181010
  Serious: Yes (Other)
  Sender: FDA-Public Use
  Company Number: SE-ASTELLAS-2018US039839

PATIENT
  Sex: Female

DRUGS (2)
  1. CORTISONE [Interacting]
     Active Substance: CORTISONE\HYDROCORTISONE
     Indication: POLYMYALGIA RHEUMATICA
     Dosage: UNK, UNKNOWN FREQ.
     Route: 065
  2. BETMIGA [Suspect]
     Active Substance: MIRABEGRON
     Indication: PRODUCT USED FOR UNKNOWN INDICATION
     Dosage: UNK UNK, UNKNOWN FREQ.
     Route: 065

REACTIONS (2)
  - Polymyalgia rheumatica [Not Recovered/Not Resolved]
  - Drug interaction [Unknown]
